FAERS Safety Report 7628532-3 (Version None)
Quarter: 2011Q3

REPORT INFORMATION
  Report Type: 
  Country: None (occurrence: None)
  Receive Date: 20110720
  Receipt Date: 20110720
  Transmission Date: 20111222
  Serious: No
  Sender: FDA-Public Use
  Company Number: None

PATIENT
  Age: 36 Year
  Sex: Male

DRUGS (2)
  1. VENLAFAXINE HCL EXTENDED-RELEASE [Suspect]
     Indication: DEPRESSION
     Dosage: 150MG XR ONCE DAILY PO 6/09 - 6/18/10
     Route: 048
  2. VENLAFAXINE HCL EXTENDED-RELEASE [Suspect]
     Indication: ANXIETY
     Dosage: 150MG XR ONCE DAILY PO 6/09 - 6/18/10
     Route: 048

REACTIONS (5)
  - PRODUCT SUBSTITUTION ISSUE [None]
  - DIARRHOEA [None]
  - ABDOMINAL DISTENSION [None]
  - DECREASED APPETITE [None]
  - NAUSEA [None]
